FAERS Safety Report 8965827 (Version 2)
Quarter: 2013Q1

REPORT INFORMATION
  Report Type: Spontaneous
  Country: ES (occurrence: ES)
  Receive Date: 20121217
  Receipt Date: 20130219
  Transmission Date: 20140127
  Serious: Yes (Other)
  Sender: FDA-Public Use
  Company Number: ES-SANOFI-AVENTIS-2012SA090855

PATIENT
  Sex: 0

DRUGS (7)
  1. CLEXANE [Suspect]
     Indication: PROPHYLAXIS
     Dosage: FORM: PRE-FILLED SYRINGES
     Route: 065
  2. CLEXANE [Suspect]
     Indication: PROPHYLAXIS
     Dosage: FORM: PRE-FILLED SYRINGES
     Route: 065
  3. CLEXANE [Suspect]
     Indication: PROPHYLAXIS
     Dosage: FORM: PRE-FILLED SYRINGES
     Route: 065
  4. CLEXANE [Suspect]
     Indication: PROPHYLAXIS
     Route: 065
  5. CLEXANE [Suspect]
     Indication: PROPHYLAXIS
     Route: 065
  6. CLEXANE [Suspect]
     Indication: PROPHYLAXIS
     Route: 065
  7. CLEXANE [Suspect]
     Indication: PROPHYLAXIS
     Route: 065

REACTIONS (1)
  - Thrombosis in device [Unknown]
